FAERS Safety Report 8802724 (Version 4)
Quarter: 2013Q4

REPORT INFORMATION
  Report Type: Spontaneous
  Country: US (occurrence: US)
  Receive Date: 20120921
  Receipt Date: 20131206
  Transmission Date: 20140711
  Serious: Yes (Hospitalization, Other)
  Sender: FDA-Public Use
  Company Number: US-009507513-1209USA004336

PATIENT
  Sex: Female
  Weight: 77.98 kg

DRUGS (4)
  1. FOSAMAX [Suspect]
     Indication: OSTEOPENIA
     Dosage: 70 MG, QW
     Route: 048
     Dates: start: 2002, end: 201009
  2. FOSAMAX PLUS D [Suspect]
     Indication: OSTEOPENIA
     Dosage: 70 MG, UNK
     Route: 048
     Dates: start: 2002, end: 201009
  3. VITAMIN D (UNSPECIFIED) [Concomitant]
     Indication: OSTEOPENIA
  4. EVISTA [Concomitant]
     Dosage: UNK
     Dates: start: 2002, end: 201009

REACTIONS (18)
  - Femur fracture [Unknown]
  - Intramedullary rod insertion [Unknown]
  - Bone graft [Unknown]
  - Surgery [Unknown]
  - Low turnover osteopathy [Unknown]
  - Vitamin D deficiency [Unknown]
  - Tendon operation [Unknown]
  - Hypercholesterolaemia [Unknown]
  - Osteoporosis [Unknown]
  - Psoriasis [Unknown]
  - Appendicectomy [Unknown]
  - Adenotonsillectomy [Unknown]
  - Insomnia [Unknown]
  - Adverse event [Unknown]
  - Adverse event [Unknown]
  - Scoliosis [Unknown]
  - Vertebral osteophyte [Unknown]
  - Haemoglobin decreased [Unknown]
